FAERS Safety Report 5066748-3 (Version None)
Quarter: 2006Q3

REPORT INFORMATION
  Report Type: 
  Country: None (occurrence: None)
  Receive Date: 20060801
  Receipt Date: 20060301
  Transmission Date: 20061208
  Serious: Yes (Hospitalization)
  Sender: FDA-Public Use
  Company Number: US-ROCHE-438841

PATIENT
  Age: 26 Year
  Sex: Male
  Weight: 62.6 kg

DRUGS (2)
  1. ACCUTANE [Suspect]
     Indication: DRUG USE FOR UNKNOWN INDICATION
     Route: 048
     Dates: start: 19920709, end: 19920808
  2. ACCUTANE [Suspect]
     Route: 048
     Dates: start: 19930609, end: 19930809

REACTIONS (54)
  - ABDOMINAL PAIN [None]
  - ACQUIRED IMMUNODEFICIENCY SYNDROME [None]
  - ALANINE AMINOTRANSFERASE INCREASED [None]
  - ANAEMIA [None]
  - ARTHRALGIA [None]
  - ASPARTATE AMINOTRANSFERASE INCREASED [None]
  - BETA HAEMOLYTIC STREPTOCOCCAL INFECTION [None]
  - BLOOD ALKALINE PHOSPHATASE INCREASED [None]
  - BLOOD CHOLESTEROL INCREASED [None]
  - BLOOD POTASSIUM DECREASED [None]
  - BLOOD SODIUM DECREASED [None]
  - BLOOD TRIGLYCERIDES INCREASED [None]
  - CACHEXIA [None]
  - CARDIAC FAILURE CONGESTIVE [None]
  - CHRONIC FATIGUE SYNDROME [None]
  - COLITIS [None]
  - COLITIS ULCERATIVE [None]
  - CROHN'S DISEASE [None]
  - CYST [None]
  - DIABETES MELLITUS [None]
  - DIARRHOEA [None]
  - DUODENITIS [None]
  - DYSPEPSIA [None]
  - EROSIVE OESOPHAGITIS [None]
  - GASTRIC HAEMORRHAGE [None]
  - GASTRIC PERFORATION [None]
  - GASTRIC ULCER [None]
  - GASTROENTERITIS CRYPTOSPORIDIAL [None]
  - GASTROOESOPHAGEAL REFLUX DISEASE [None]
  - HAEMOGLOBIN DECREASED [None]
  - ILEITIS [None]
  - INFLAMMATORY BOWEL DISEASE [None]
  - INTESTINAL HAEMORRHAGE [None]
  - INTESTINAL ULCER PERFORATION [None]
  - LIVER FUNCTION TEST ABNORMAL [None]
  - MALNUTRITION [None]
  - MUCOUS MEMBRANE DISORDER [None]
  - MUSCULOSKELETAL DISORDER [None]
  - OESOPHAGITIS [None]
  - PLATELET COUNT DECREASED [None]
  - PROCTITIS [None]
  - PYREXIA [None]
  - RASH [None]
  - RECTAL HAEMORRHAGE [None]
  - RECTAL ULCER [None]
  - RHEUMATOID ARTHRITIS [None]
  - SMALL INTESTINAL OBSTRUCTION [None]
  - STREPTOCOCCAL INFECTION [None]
  - SUICIDAL IDEATION [None]
  - VOMITING [None]
  - WEIGHT DECREASED [None]
  - WHITE BLOOD CELL COUNT DECREASED [None]
  - WHITE BLOOD CELL COUNT INCREASED [None]
  - WOUND INFECTION [None]
